FAERS Safety Report 5767426-5 (Version None)
Quarter: 2008Q2

REPORT INFORMATION
  Report Type: 
  Country: None (occurrence: None)
  Receive Date: 20080612
  Receipt Date: 20080606
  Transmission Date: 20081010
  Serious: Yes (Hospitalization)
  Sender: FDA-Public Use
  Company Number: US-ASTRAZENECA-2008UW11467

PATIENT
  Age: 22 Year
  Sex: Female
  Weight: 63.6 kg

DRUGS (5)
  1. SEROQUEL [Suspect]
     Route: 048
  2. VISTARIL [Concomitant]
  3. LEXAPRO [Concomitant]
  4. ELAVIL [Concomitant]
  5. VALIUM [Concomitant]

REACTIONS (2)
  - DEPRESSION [None]
  - HEPATITIS [None]
